FAERS Safety Report 26187854 (Version 1)
Quarter: 2025Q4

REPORT INFORMATION
  Report Type: Spontaneous
  Country: US (occurrence: None)
  Receive Date: 20251222
  Receipt Date: 20251222
  Transmission Date: 20260117
  Serious: Yes (Death)
  Sender: FDA-CTU
  Company Number: None

PATIENT
  Age: 31 Year
  Sex: Female

DRUGS (6)
  1. BRAFTOVI [Suspect]
     Active Substance: ENCORAFENIB
     Dosage: FREQUENCY : DAILY;
     Route: 048
     Dates: start: 20250731
  2. MEKTOVI [Concomitant]
     Active Substance: BINIMETINIB
  3. STIVARGA [Concomitant]
     Active Substance: REGORAFENIB MONOHYDRATE
  4. LIDOCAINE [Concomitant]
     Active Substance: LIDOCAINE
  5. PREDNISONE [Concomitant]
     Active Substance: PREDNISONE
  6. BACTRIM REG STRENGTH [Concomitant]

REACTIONS (1)
  - Disease progression [None]

NARRATIVE: CASE EVENT DATE: 20251212
